FAERS Safety Report 9855771 (Version 2)
Quarter: 2014Q1

REPORT INFORMATION
  Report Type: Spontaneous
  Country: DE (occurrence: DE)
  Receive Date: 20140130
  Receipt Date: 20140317
  Transmission Date: 20141002
  Serious: Yes (Other)
  Sender: FDA-Public Use
  Company Number: PHHY2014DE010852

PATIENT
  Sex: Female
  Weight: 60 kg

DRUGS (3)
  1. ILARIS [Suspect]
     Indication: JUVENILE IDIOPATHIC ARTHRITIS
     Dosage: 150 MG, EVERY 6 WEEKS
     Dates: start: 201201
  2. ILARIS [Suspect]
     Indication: OFF LABEL USE
     Dosage: 150 MG, EVERY 8 WEEKS
  3. ILARIS [Suspect]
     Dosage: 150 MG, EVERY 10 WEEKS

REACTIONS (4)
  - Juvenile idiopathic arthritis [Recovering/Resolving]
  - Amenorrhoea [Recovered/Resolved]
  - Menstrual disorder [Recovered/Resolved]
  - Nasopharyngitis [Recovering/Resolving]
